FAERS Safety Report 19731909 (Version 2)
Quarter: 2022Q4

REPORT INFORMATION
  Report Type: Report from Study
  Country: US (occurrence: US)
  Receive Date: 20210820
  Receipt Date: 20221018
  Transmission Date: 20230113
  Serious: Yes (Hospitalization)
  Sender: FDA-Public Use
  Company Number: US-MACROGENICS-2021000183

PATIENT
  Age: 66 Year
  Sex: Female
  Weight: 108.8 kg

DRUGS (4)
  1. TEBOTELIMAB [Suspect]
     Active Substance: TEBOTELIMAB
     Indication: Colorectal cancer
     Dosage: 600 MILLIGRAM
     Route: 042
     Dates: start: 20201216, end: 20201216
  2. TEBOTELIMAB [Suspect]
     Active Substance: TEBOTELIMAB
     Dosage: 600 MILLIGRAM
     Route: 042
     Dates: start: 20210610, end: 20210610
  3. MARGETUXIMAB [Suspect]
     Active Substance: MARGETUXIMAB
     Indication: Colorectal cancer
     Dosage: 15 MILLIGRAM/KILOGRAM
     Route: 042
     Dates: start: 20201216, end: 20201216
  4. MARGETUXIMAB [Suspect]
     Active Substance: MARGETUXIMAB
     Dosage: 15 MILLIGRAM/KILOGRAM
     Route: 042
     Dates: start: 20210610, end: 20210610

REACTIONS (1)
  - Pain in extremity [Recovered/Resolved]

NARRATIVE: CASE EVENT DATE: 20210712
